FAERS Safety Report 7045791-9 (Version None)
Quarter: 2010Q4

REPORT INFORMATION
  Report Type: 
  Country: None (occurrence: None)
  Receive Date: 20101014
  Receipt Date: 20101011
  Transmission Date: 20110411
  Serious: Yes (Hospitalization)
  Sender: FDA-Public Use
  Company Number: US-JNJFOC-20080504170

PATIENT
  Sex: Female
  Weight: 38.56 kg

DRUGS (2)
  1. MOTRIN [Suspect]
     Indication: MIGRAINE
  2. MOTRIN [Suspect]
     Indication: MYALGIA

REACTIONS (12)
  - ABDOMINAL DISCOMFORT [None]
  - BLADDER DISORDER [None]
  - CRYING [None]
  - DRUG INEFFECTIVE [None]
  - FIBROMYALGIA [None]
  - INTESTINAL HAEMORRHAGE [None]
  - MALAISE [None]
  - PAIN [None]
  - PANCREATITIS [None]
  - PARAESTHESIA [None]
  - RENAL DISORDER [None]
  - ROCKY MOUNTAIN SPOTTED FEVER [None]
